FAERS Safety Report 25277948 (Version 2)
Quarter: 2025Q2

REPORT INFORMATION
  Report Type: Report from Study
  Country: US (occurrence: US)
  Receive Date: 20250507
  Receipt Date: 20250514
  Transmission Date: 20250717
  Serious: Yes (Hospitalization, Other)
  Sender: ABBVIE
  Company Number: US-ABBVIE-6266032

PATIENT
  Age: 41 Year
  Sex: Female
  Weight: 74 kg

DRUGS (10)
  1. BOTOX [Suspect]
     Active Substance: ONABOTULINUMTOXINA
     Indication: Migraine
     Route: 030
     Dates: start: 202212, end: 202212
  2. NAPROXEN [Concomitant]
     Active Substance: NAPROXEN
     Indication: Complex regional pain syndrome
  3. HYALURONIC ACID [Concomitant]
     Active Substance: HYALURONIC ACID
     Indication: Osteoarthritis
  4. CYCLOBENZAPRINE [Concomitant]
     Active Substance: CYCLOBENZAPRINE
     Indication: Complex regional pain syndrome
  5. FAMOTIDINE [Concomitant]
     Active Substance: FAMOTIDINE
     Indication: Gastrooesophageal reflux disease
  6. PANTOPRAZOLE [Concomitant]
     Active Substance: PANTOPRAZOLE
     Indication: Gastrooesophageal reflux disease
  7. DICLOFENAC DIETHYLAMINE [Concomitant]
     Active Substance: DICLOFENAC DIETHYLAMINE
     Indication: Osteoarthritis
  8. ALENDRONATE SODIUM [Concomitant]
     Active Substance: ALENDRONATE SODIUM
     Indication: Product used for unknown indication
  9. GABAPENTIN [Concomitant]
     Active Substance: GABAPENTIN
     Indication: Pain
  10. FLECTOR [Concomitant]
     Active Substance: DICLOFENAC EPOLAMINE
     Indication: Product used for unknown indication

REACTIONS (16)
  - Shoulder operation [Recovering/Resolving]
  - Muscular weakness [Not Recovered/Not Resolved]
  - Complex regional pain syndrome [Not Recovered/Not Resolved]
  - Limb injury [Unknown]
  - Urinary incontinence [Not Recovered/Not Resolved]
  - Illness [Unknown]
  - Sepsis [Recovered/Resolved]
  - Neuropathy peripheral [Unknown]
  - Calculus bladder [Recovering/Resolving]
  - Urinary tract infection [Recovered/Resolved]
  - Nerve compression [Not Recovered/Not Resolved]
  - Periarthritis [Not Recovered/Not Resolved]
  - Brachial plexus injury [Not Recovered/Not Resolved]
  - Bladder dilatation [Recovered/Resolved]
  - Cubital tunnel syndrome [Unknown]
  - Limb injury [Unknown]

NARRATIVE: CASE EVENT DATE: 20220101
